FAERS Safety Report 8736607 (Version 4)
Quarter: 2014Q1

REPORT INFORMATION
  Report Type: Spontaneous
  Country: FR (occurrence: FR)
  Receive Date: 20120822
  Receipt Date: 20140207
  Transmission Date: 20141002
  Serious: Yes (Disabling)
  Sender: FDA-Public Use
  Company Number: FR-GLAXOSMITHKLINE-B0823106A

PATIENT
  Age: 70 Year
  Sex: Female

DRUGS (3)
  1. REQUIP LP [Suspect]
     Indication: PARKINSON^S DISEASE
     Dosage: 14MG PER DAY
     Route: 048
  2. AZILECT [Suspect]
     Indication: PARKINSON^S DISEASE
     Dosage: 1MG PER DAY
     Route: 048
  3. SINEMET [Suspect]
     Indication: PARKINSON^S DISEASE
     Dosage: 100MG THREE TIMES PER DAY
     Route: 048
     Dates: end: 20120709

REACTIONS (6)
  - Bursitis [Not Recovered/Not Resolved]
  - Rotator cuff syndrome [Not Recovered/Not Resolved]
  - Tendonitis [Unknown]
  - Oedema peripheral [Recovering/Resolving]
  - Skin mass [Unknown]
  - Inappropriate schedule of drug administration [Unknown]
